FAERS Safety Report 19854888 (Version 1)
Quarter: 2021Q3

REPORT INFORMATION
  Report Type: Spontaneous
  Country: US (occurrence: US)
  Receive Date: 20210920
  Receipt Date: 20210920
  Transmission Date: 20211014
  Serious: No
  Sender: FDA-Public Use
  Company Number: US-AUROBINDO-AUR-APL-2020-057811

PATIENT
  Sex: Female

DRUGS (1)
  1. ALPRAZOLAM TABLETS USP 0.5MG [Suspect]
     Active Substance: ALPRAZOLAM
     Indication: PRODUCT USED FOR UNKNOWN INDICATION
     Dosage: 0.5 DOSAGE FORM, OCCASIONALLY
     Route: 065

REACTIONS (3)
  - Product physical issue [Unknown]
  - Product packaging issue [Unknown]
  - Wrong technique in product usage process [Unknown]
